FAERS Safety Report 13085129 (Version 2)
Quarter: 2017Q1

REPORT INFORMATION
  Report Type: Spontaneous
  Country: US (occurrence: US)
  Receive Date: 20170104
  Receipt Date: 20170228
  Transmission Date: 20170428
  Serious: Yes (Hospitalization)
  Sender: FDA-Public Use
  Company Number: US-HORIZON-RAV-0001-2017

PATIENT
  Age: 13 Year
  Sex: Female
  Weight: 42.9 kg

DRUGS (9)
  1. ZYRTEC [Concomitant]
     Active Substance: CETIRIZINE HYDROCHLORIDE
     Dates: start: 20110321
  2. ARGININE [Concomitant]
     Active Substance: ARGININE
     Route: 048
     Dates: start: 20030411
  3. CYCLINEX [Concomitant]
  4. HYDROCORTISONE 2.5% [Concomitant]
     Dates: start: 20150130
  5. FLUOCINOLONE ACETONIDE SCALP [Concomitant]
     Route: 061
     Dates: start: 20160719
  6. SINGULAIR [Concomitant]
     Active Substance: MONTELUKAST SODIUM
     Route: 048
  7. RAVICTI [Suspect]
     Active Substance: GLYCEROL PHENYLBUTYRATE
     Indication: ARGININOSUCCINATE SYNTHETASE DEFICIENCY
     Dosage: 5 ML TID
     Dates: start: 20130115
  8. SELSUN [Concomitant]
     Active Substance: SELENIUM SULFIDE
     Route: 061
  9. CHRONULAC [Concomitant]
     Active Substance: LACTULOSE
     Route: 048
     Dates: start: 20150111

REACTIONS (3)
  - Somnolence [Recovered/Resolved]
  - Hyperammonaemia [Recovered/Resolved]
  - Menstruation irregular [Unknown]

NARRATIVE: CASE EVENT DATE: 201611
